FAERS Safety Report 9351231 (Version 2)
Quarter: 2013Q3

REPORT INFORMATION
  Report Type: Spontaneous
  Country: US (occurrence: US)
  Receive Date: 20130617
  Receipt Date: 20130806
  Transmission Date: 20140515
  Serious: Yes (Other)
  Sender: FDA-Public Use
  Company Number: US-PFIZER INC-2013180374

PATIENT
  Age: 62 Year
  Sex: Female

DRUGS (14)
  1. NEURONTIN [Suspect]
     Indication: FIBROMYALGIA
     Dosage: 400 MG, 4X/DAY
     Dates: start: 1997
  2. CELEBREX [Suspect]
     Indication: ARTHRITIS
     Dosage: 200 MG, 2X/DAY
  3. ROBAXIN [Suspect]
     Indication: ARTHRITIS
     Dosage: UNK
  4. ZANAFLEX [Suspect]
     Indication: MUSCLE RELAXANT THERAPY
     Dosage: UNK
  5. ATENOLOL [Concomitant]
     Dosage: UNK
  6. AMARYL [Concomitant]
     Dosage: UNK
  7. DITROPAN [Concomitant]
     Dosage: UNK
  8. PRAVACHOL [Concomitant]
     Dosage: UNK
  9. PROVIGIL [Concomitant]
     Dosage: UNK
  10. PREDNISONE [Concomitant]
     Dosage: UNK
  11. MACROBID [Concomitant]
     Dosage: UNK
  12. VICODIN [Concomitant]
     Dosage: UNK
  13. WELLBUTRIN [Concomitant]
     Dosage: UNK
  14. SKELAXIN [Concomitant]
     Indication: MUSCLE RELAXANT THERAPY
     Dosage: UNK

REACTIONS (8)
  - Multiple sclerosis [Unknown]
  - Hypersomnia [Unknown]
  - Withdrawal syndrome [Recovered/Resolved]
  - Psychomotor hyperactivity [Recovered/Resolved]
  - Hyperhidrosis [Recovered/Resolved]
  - Somnolence [Unknown]
  - Vitamin D decreased [Unknown]
  - Drug ineffective [Unknown]
